FAERS Safety Report 15085344 (Version 1)
Quarter: 2018Q2

REPORT INFORMATION
  Report Type: Report from Study
  Country: NL (occurrence: NL)
  Receive Date: 20180628
  Receipt Date: 20180628
  Transmission Date: 20180711
  Serious: Yes (Other)
  Sender: FDA-Public Use
  Company Number: PHHO2018NL000760

PATIENT
  Age: 59 Year
  Sex: Female

DRUGS (1)
  1. ESIDRIX [Suspect]
     Active Substance: HYDROCHLOROTHIAZIDE
     Indication: ESSENTIAL HYPERTENSION
     Dosage: 12.5/25, MG
     Route: 048

REACTIONS (1)
  - Hypokalaemia [Unknown]
